FAERS Safety Report 9107737 (Version 2)
Quarter: 2013Q2

REPORT INFORMATION
  Report Type: Spontaneous
  Country: US (occurrence: US)
  Receive Date: 20130221
  Receipt Date: 20130411
  Transmission Date: 20140414
  Serious: Yes (Hospitalization)
  Sender: FDA-Public Use
  Company Number: US-BIOGENIDEC-2013BI015237

PATIENT
  Sex: Female

DRUGS (3)
  1. TYSABRI [Suspect]
     Indication: MULTIPLE SCLEROSIS
     Route: 042
     Dates: start: 20100406
  2. RITALIN [Concomitant]
     Indication: FATIGUE
  3. ELAVIL [Concomitant]
     Indication: NEURALGIA

REACTIONS (1)
  - Accidental overdose [Recovered/Resolved]
